FAERS Safety Report 10517933 (Version 2)
Quarter: 2015Q1

REPORT INFORMATION
  Report Type: Spontaneous
  Country: JP (occurrence: JP)
  Receive Date: 20141015
  Receipt Date: 20150129
  Transmission Date: 20150720
  Serious: Yes (Hospitalization)
  Sender: FDA-Public Use
  Company Number: JP-009507513-1410JPN005616

PATIENT
  Age: 46 Year
  Sex: Male

DRUGS (4)
  1. SITAGLIPTIN PHOSPHATE [Suspect]
     Active Substance: SITAGLIPTIN PHOSPHATE
     Dosage: TOTAL DAILY DOSE:50MG
     Route: 048
     Dates: start: 2012, end: 201309
  2. GLICLAZIDE [Concomitant]
     Active Substance: GLICLAZIDE
     Dosage: TOTAL DIALY DOSE:20MG
     Route: 048
     Dates: start: 201308, end: 201309
  3. GLIMEPIRIDE. [Concomitant]
     Active Substance: GLIMEPIRIDE
     Dosage: TOTAL DAILY DOSE:0.5MG
     Route: 048
     Dates: start: 2012, end: 201303
  4. GLIMEPIRIDE. [Concomitant]
     Active Substance: GLIMEPIRIDE
     Dosage: TOTAL DAILY DOSE: 1MG
     Dates: start: 201303, end: 201309

REACTIONS (1)
  - Glycosylated haemoglobin increased [Recovering/Resolving]

NARRATIVE: CASE EVENT DATE: 201303
